FAERS Safety Report 9251646 (Version 4)
Quarter: 2013Q4

REPORT INFORMATION
  Report Type: Spontaneous
  Country: US (occurrence: US)
  Receive Date: 20130424
  Receipt Date: 20131028
  Transmission Date: 20140711
  Serious: Yes (Other)
  Sender: FDA-Public Use
  Company Number: US-PFIZER INC-2013123542

PATIENT
  Age: 40 Year
  Sex: Female
  Weight: 77.1 kg

DRUGS (2)
  1. ELELYSO [Suspect]
     Indication: GAUCHER^S DISEASE
     Dosage: 4400 UNITS, EVERY 2 WEEKS
     Route: 042
     Dates: start: 20130116
  2. ELELYSO [Suspect]
     Dosage: 4400 UNITS, EVERY OTHER WEEK
     Route: 042
     Dates: start: 201303

REACTIONS (6)
  - Bone disorder [Unknown]
  - Bone pain [Unknown]
  - Blood pressure increased [Unknown]
  - Body temperature increased [Unknown]
  - Weight increased [Unknown]
  - Infusion site coldness [Unknown]
